FAERS Safety Report 10066661 (Version 1)
Quarter: 2014Q2

REPORT INFORMATION
  Report Type: Report from Study
  Country: US (occurrence: US)
  Receive Date: 20140408
  Receipt Date: 20140408
  Transmission Date: 20141212
  Serious: Yes (Hospitalization)
  Sender: FDA-Public Use
  Company Number: US-ABBVIE-14P-163-1219820-00

PATIENT
  Age: 55 Year
  Sex: Male
  Weight: 102.15 kg

DRUGS (11)
  1. ANDROGEL [Suspect]
     Indication: BLOOD TESTOSTERONE DECREASED
     Dates: start: 2012
  2. LORTAB [Suspect]
     Indication: PAIN
     Dosage: FOUR TO TEN 500MG TABLETS PER DAY
     Dates: end: 201401
  3. XANAX [Suspect]
     Indication: ANXIETY
  4. FENTANYL [Suspect]
     Indication: PAIN
     Dates: end: 201401
  5. ULTRAM [Concomitant]
     Indication: PAIN
  6. CITALOPRAM [Concomitant]
     Indication: DEPRESSION
  7. AMITRIPTYLINE [Concomitant]
     Indication: INSOMNIA
  8. SIMVASTATIN [Concomitant]
     Indication: BLOOD CHOLESTEROL INCREASED
  9. TRICOR [Concomitant]
     Indication: BLOOD TRIGLYCERIDES INCREASED
  10. VITAMIN D [Concomitant]
     Indication: VITAMIN SUPPLEMENTATION
  11. VITAMIN C [Concomitant]
     Indication: VITAMIN SUPPLEMENTATION

REACTIONS (5)
  - Drug detoxification [Recovered/Resolved]
  - Abdominal pain upper [Recovered/Resolved]
  - Tremor [Recovered/Resolved]
  - Diarrhoea [Recovered/Resolved]
  - Withdrawal syndrome [Recovered/Resolved]
